FAERS Safety Report 9115560 (Version 2)
Quarter: 2013Q1

REPORT INFORMATION
  Report Type: Spontaneous
  Country: HU (occurrence: HU)
  Receive Date: 20130225
  Receipt Date: 20130311
  Transmission Date: 20140127
  Serious: Yes (Hospitalization)
  Sender: FDA-Public Use
  Company Number: HU-JNJFOC-20130211377

PATIENT
  Age: 63 Year
  Sex: Male

DRUGS (5)
  1. XARELTO [Suspect]
     Indication: CEREBROVASCULAR ACCIDENT PROPHYLAXIS
     Route: 048
     Dates: start: 20121009, end: 20130111
  2. XARELTO [Suspect]
     Indication: ATRIAL FIBRILLATION
     Route: 048
     Dates: start: 20121009, end: 20130111
  3. BISOPROLOL [Concomitant]
     Indication: HYPERTENSION
     Route: 065
  4. PERINDOPRIL [Concomitant]
     Indication: HYPERTENSION
     Route: 065
  5. AMLODIPINE [Concomitant]
     Indication: HYPERTENSION
     Route: 065

REACTIONS (2)
  - Ischaemic stroke [Recovering/Resolving]
  - Drug ineffective [Unknown]
